FAERS Safety Report 23753494 (Version 1)
Quarter: 2024Q2

REPORT INFORMATION
  Report Type: Report from Study
  Country: JP (occurrence: JP)
  Receive Date: 20240417
  Receipt Date: 20240417
  Transmission Date: 20240716
  Serious: Yes (Other)
  Sender: FDA-Public Use
  Company Number: JP-BRISTOL-MYERS SQUIBB COMPANY-2023-139350

PATIENT
  Age: 68 Year
  Sex: Male
  Weight: 75.4 kg

DRUGS (1)
  1. BREYANZI [Suspect]
     Active Substance: LISOCABTAGENE MARALEUCEL
     Indication: Non-Hodgkin^s lymphoma
     Dosage: TOTAL NUMBER OF CELLS ADMINISTERED: 100 ? 10^6, TYPE OF CELLS ADMINISTERED: CD4 POSITIVE LYMPHOCYTES
     Route: 042
     Dates: start: 20230303, end: 20230303

REACTIONS (3)
  - Cytokine release syndrome [Recovered/Resolved]
  - Hypogammaglobulinaemia [Not Recovered/Not Resolved]
  - Lymphocyte count decreased [Unknown]

NARRATIVE: CASE EVENT DATE: 20230306
